FAERS Safety Report 7654840-6 (Version None)
Quarter: 2011Q3

REPORT INFORMATION
  Report Type: 
  Country: None (occurrence: None)
  Receive Date: 20110803
  Receipt Date: 20110803
  Transmission Date: 20111222
  Serious: No
  Sender: FDA-Public Use
  Company Number: None

PATIENT
  Sex: Female
  Weight: 63.5036 kg

DRUGS (1)
  1. COPOXONE [Suspect]
     Indication: MULTIPLE SCLEROSIS
     Dosage: COPAXONE DAILY SQ
     Route: 058
     Dates: start: 20110511, end: 20110801

REACTIONS (3)
  - URTICARIA [None]
  - CONTUSION [None]
  - INJECTION SITE REACTION [None]
